FAERS Safety Report 9316731 (Version 1)
Quarter: 2013Q2

REPORT INFORMATION
  Report Type: Spontaneous
  Country: US (occurrence: None)
  Receive Date: 20130528
  Receipt Date: 20130528
  Transmission Date: 20140414
  Serious: Yes (Hospitalization)
  Sender: FDA-Public Use
  Company Number: None

PATIENT
  Age: 76 Year
  Sex: Female
  Weight: 99.34 kg

DRUGS (1)
  1. AMIODARONE [Suspect]
     Indication: ATRIAL FLUTTER
     Dates: start: 20120404, end: 20130525

REACTIONS (5)
  - Pneumonia [None]
  - Chronic obstructive pulmonary disease [None]
  - Pulmonary mass [None]
  - Pulmonary toxicity [None]
  - Toxicity to various agents [None]
